FAERS Safety Report 5631699-X (Version None)
Quarter: 2008Q1

REPORT INFORMATION
  Report Type: 
  Country: None (occurrence: None)
  Receive Date: 20080220
  Receipt Date: 20080214
  Transmission Date: 20080703
  Serious: Yes (Other)
  Sender: FDA-Public Use
  Company Number: GB-JNJFOC-20080203677

PATIENT
  Age: 49 Year
  Sex: Female

DRUGS (1)
  1. DURAGESIC-100 [Suspect]
     Indication: PAIN
     Dosage: COMBINATION OF 75UG/HR AND 25UG/HR PATCHES
     Route: 062

REACTIONS (6)
  - DRUG INEFFECTIVE [None]
  - DRY SKIN [None]
  - GANGRENE [None]
  - ORAL INTAKE REDUCED [None]
  - PHARMACEUTICAL PRODUCT COMPLAINT [None]
  - RENAL FAILURE [None]
